FAERS Safety Report 10419775 (Version 4)
Quarter: 2014Q4

REPORT INFORMATION
  Report Type: Spontaneous
  Country: NO (occurrence: NO)
  Receive Date: 20140829
  Receipt Date: 20141024
  Transmission Date: 20150528
  Serious: Yes (Hospitalization)
  Sender: FDA-Public Use
  Company Number: PHHY2013NO109274

PATIENT
  Age: 41 Year
  Sex: Male

DRUGS (11)
  1. RITALIN SR [Suspect]
     Active Substance: METHYLPHENIDATE HYDROCHLORIDE
     Indication: ATTENTION DEFICIT/HYPERACTIVITY DISORDER
     Dosage: 60 MG, QD
     Route: 048
  2. RITALIN [Suspect]
     Active Substance: METHYLPHENIDATE HYDROCHLORIDE
     Dosage: 20-30 MG DAILY IF NECCESSARY.
     Route: 048
     Dates: end: 20130910
  3. RITALIN SR [Interacting]
     Active Substance: METHYLPHENIDATE HYDROCHLORIDE
     Dosage: 30 MG, BID
     Route: 048
  4. ACETYLSALISYLSYRE [Concomitant]
     Dosage: 75 MG, UNK
     Route: 065
  5. LIPITOR [Concomitant]
     Active Substance: ATORVASTATIN CALCIUM
     Indication: PRODUCT USED FOR UNKNOWN INDICATION
     Dosage: 10 MG, UNK
     Route: 065
  6. RITALIN SR [Interacting]
     Active Substance: METHYLPHENIDATE HYDROCHLORIDE
     Dosage: 40 MG, BID (40 MG IN THE MORNING AND 40 MG IN THE NIGHT)
     Route: 048
  7. BRILIQUE [Concomitant]
     Active Substance: TICAGRELOR
     Dosage: 90 MG, BID
     Route: 065
  8. RITALIN [Suspect]
     Active Substance: METHYLPHENIDATE HYDROCHLORIDE
     Indication: ATTENTION DEFICIT/HYPERACTIVITY DISORDER
     Dosage: 2-3 DF DAILY IF NEEDED
     Route: 048
     Dates: end: 20130910
  9. EFFEXOR [Interacting]
     Active Substance: VENLAFAXINE HYDROCHLORIDE
     Indication: ANXIETY
     Dosage: 75 MG, QD
     Route: 048
  10. ACETYLSALISYLSYRE [Concomitant]
     Indication: PRODUCT USED FOR UNKNOWN INDICATION
     Dosage: 300 MG, UNK
     Route: 048
  11. BRILIQUE [Concomitant]
     Active Substance: TICAGRELOR
     Indication: PRODUCT USED FOR UNKNOWN INDICATION
     Dosage: 180 MG, UNK
     Route: 048

REACTIONS (7)
  - Drug interaction [Unknown]
  - Chest pain [Unknown]
  - Heart rate increased [Unknown]
  - Supraventricular tachycardia [Recovered/Resolved]
  - Myocardial infarction [Unknown]
  - Palpitations [Unknown]
  - Troponin increased [Unknown]

NARRATIVE: CASE EVENT DATE: 20130907
